FAERS Safety Report 17252789 (Version 1)
Quarter: 2020Q1

REPORT INFORMATION
  Report Type: Spontaneous
  Country: US (occurrence: US)
  Receive Date: 20200109
  Receipt Date: 20200109
  Transmission Date: 20200409
  Serious: No
  Sender: FDA-Public Use
  Company Number: US-VERTEX PHARMACEUTICALS-2020-000113

PATIENT
  Sex: Female

DRUGS (3)
  1. SYMDEKO [Suspect]
     Active Substance: IVACAFTOR\TEZACAFTOR
     Indication: CYSTIC FIBROSIS
     Dosage: 1 DOSAGE FORM, BID
     Route: 048
     Dates: start: 20180616
  2. PULMOZYME [Concomitant]
     Active Substance: DORNASE ALFA
  3. BETHKIS [Concomitant]
     Active Substance: TOBRAMYCIN

REACTIONS (1)
  - Acoustic stimulation tests abnormal [Unknown]
